FAERS Safety Report 5124562-4 (Version None)
Quarter: 2006Q3

REPORT INFORMATION
  Report Type: 
  Country: None (occurrence: None)
  Receive Date: 20060821
  Receipt Date: 20060606
  Transmission Date: 20061208
  Serious: No
  Sender: FDA-Public Use
  Company Number: TPA2006A00947

PATIENT
  Age: 16 Year
  Sex: Male

DRUGS (9)
  1. ROZEREM [Suspect]
     Indication: INSOMNIA
     Dosage: 89 MG, HS, PER ORAL
     Route: 048
     Dates: start: 20060508
  2. STRATTERA [Concomitant]
  3. HYDROXYZINE [Concomitant]
  4. TOPAMAX [Concomitant]
  5. SYMBYAX (FLUOXETINE, OLANZAPINE) [Concomitant]
  6. INDERAL LA [Concomitant]
  7. PREVACID [Concomitant]
  8. TIZANIDINE HCL [Concomitant]
  9. DEPAKOTE ER [Concomitant]

REACTIONS (1)
  - FATIGUE [None]
